FAERS Safety Report 10398933 (Version 1)
Quarter: 2014Q3

REPORT INFORMATION
  Report Type: Spontaneous
  Country: US (occurrence: None)
  Receive Date: 20140818
  Receipt Date: 20140818
  Transmission Date: 20150326
  Serious: Yes (Disabling)
  Sender: FDA-Public Use
  Company Number: None

PATIENT

DRUGS (1)
  1. ZOLOFT [Suspect]
     Active Substance: SERTRALINE HYDROCHLORIDE
     Indication: INSOMNIA
     Dates: start: 19990401

REACTIONS (7)
  - Hyperhidrosis [None]
  - Insomnia [None]
  - Stress [None]
  - Asthenia [None]
  - Dysphemia [None]
  - Drug ineffective [None]
  - Narcolepsy [None]
